FAERS Safety Report 6551659-4 (Version None)
Quarter: 2010Q1

REPORT INFORMATION
  Report Type: 
  Country: None (occurrence: None)
  Receive Date: 20100126
  Receipt Date: 20100115
  Transmission Date: 20100710
  Serious: Yes (Death, Hospitalization)
  Sender: FDA-Public Use
  Company Number: DE-JNJFOC-20100106156

PATIENT
  Age: 71 Year
  Sex: Male

DRUGS (2)
  1. REMICADE [Suspect]
     Indication: RHEUMATOID ARTHRITIS
     Route: 042
  2. ADALIMUMAB [Concomitant]

REACTIONS (2)
  - B-CELL LYMPHOMA [None]
  - RESPIRATORY FAILURE [None]
